FAERS Safety Report 18114877 (Version 1)
Quarter: 2020Q3

REPORT INFORMATION
  Report Type: Spontaneous
  Country: US (occurrence: US)
  Receive Date: 20200805
  Receipt Date: 20200805
  Transmission Date: 20201103
  Serious: No
  Sender: FDA-Public Use
  Company Number: US-TEVA-2020-US-1810604

PATIENT
  Sex: Male

DRUGS (1)
  1. COPAXONE [Suspect]
     Active Substance: GLATIRAMER ACETATE
     Dosage: START DATE: HAS BEEN TAKING THE PRODUCT FOR 17 YEARS, FORM STRENGTH AND DOSE: UNKNOWN
     Route: 065

REACTIONS (2)
  - Disease recurrence [Unknown]
  - Therapy non-responder [Unknown]
